FAERS Safety Report 24948021 (Version 1)
Quarter: 2025Q1

REPORT INFORMATION
  Report Type: Spontaneous
  Country: GB (occurrence: GB)
  Receive Date: 20250210
  Receipt Date: 20250210
  Transmission Date: 20250409
  Serious: No
  Sender: ALKEM
  Company Number: None

PATIENT
  Age: 78 Year
  Sex: Female
  Weight: 91 kg

DRUGS (16)
  1. EZETIMIBE [Suspect]
     Active Substance: EZETIMIBE
     Indication: Ill-defined disorder
     Route: 065
     Dates: start: 20240517
  2. ASPIRIN [Concomitant]
     Active Substance: ASPIRIN
     Indication: Ill-defined disorder
     Dosage: UNK, QD (TAKE ONE DAILY)
     Route: 065
     Dates: start: 20240115
  3. AZITHROMYCIN [Concomitant]
     Active Substance: AZITHROMYCIN
     Indication: Ill-defined disorder
     Route: 065
     Dates: start: 20230620
  4. BISOPROLOL [Concomitant]
     Active Substance: BISOPROLOL
     Indication: Ill-defined disorder
     Dosage: UNK, BID (ONE BD)
     Route: 065
     Dates: start: 20230620
  5. CARBOCYSTEINE [Concomitant]
     Active Substance: CARBOCYSTEINE
     Indication: Ill-defined disorder
     Dosage: UNK, TID (1 TDS)
     Route: 065
     Dates: start: 20230817
  6. DOXAZOSIN [Concomitant]
     Active Substance: DOXAZOSIN MESYLATE
     Indication: Ill-defined disorder
     Dosage: UNK, QD (ONE TO BE TAKEN ONCE A DAY)
     Route: 065
     Dates: start: 20231212
  7. EZETIMIBE [Concomitant]
     Active Substance: EZETIMIBE
     Indication: Ill-defined disorder
     Dosage: UNK, QD (TAKE ONE DAILY)
     Route: 065
     Dates: start: 20240418, end: 20240516
  8. BECLOMETHASONE\FORMOTEROL [Concomitant]
     Active Substance: BECLOMETHASONE\FORMOTEROL
     Indication: Ill-defined disorder
     Dosage: TWO PUFFS TWICE DAILY
     Route: 065
     Dates: start: 20221213
  9. IRBESARTAN [Concomitant]
     Active Substance: IRBESARTAN
     Indication: Ill-defined disorder
     Dosage: TAKE ONE ONCE DAILY
     Route: 065
     Dates: start: 20231212
  10. MOVICOL (POTASSIUM CHLORIDE, SODIUM HYDROGEN CARBONATE, MACROGOL 3350, [Concomitant]
     Indication: Ill-defined disorder
     Route: 065
     Dates: start: 20230412
  11. OMEPRAZOLE [Concomitant]
     Active Substance: OMEPRAZOLE
     Indication: Ill-defined disorder
     Dosage: TWO ONCE DAILY
     Route: 065
     Dates: start: 20231031
  12. PRAVASTATIN [Concomitant]
     Active Substance: PRAVASTATIN
     Indication: Ill-defined disorder
     Route: 065
     Dates: start: 20240205, end: 20240301
  13. ROSUVASTATIN [Concomitant]
     Active Substance: ROSUVASTATIN
     Indication: Ill-defined disorder
     Dosage: TAKE ONE DAILY
     Route: 065
     Dates: start: 20240301, end: 20240412
  14. ALBUTEROL [Concomitant]
     Active Substance: ALBUTEROL
     Indication: Ill-defined disorder
     Dates: start: 20220524
  15. SPIRIVA [Concomitant]
     Active Substance: TIOTROPIUM BROMIDE MONOHYDRATE
     Indication: Ill-defined disorder
     Dosage: OD (INHALE TWO PUFFS SLOW AND STEADY, ONCE DAILY (C...)
     Dates: start: 20231128
  16. SPIRONOLACTONE [Concomitant]
     Active Substance: SPIRONOLACTONE
     Indication: Ill-defined disorder
     Route: 065
     Dates: start: 20240205

REACTIONS (3)
  - Pain in extremity [Recovered/Resolved]
  - Nausea [Recovered/Resolved]
  - Urticaria [Recovered/Resolved]

NARRATIVE: CASE EVENT DATE: 20240522
